FAERS Safety Report 8063335-X (Version None)
Quarter: 2012Q1

REPORT INFORMATION
  Report Type: 
  Country: None (occurrence: None)
  Receive Date: 20120123
  Receipt Date: 20120111
  Transmission Date: 20120608
  Serious: Yes (Other)
  Sender: FDA-Public Use
  Company Number: DE-ROCHE-1016951

PATIENT
  Age: 72 Year
  Sex: Female

DRUGS (4)
  1. SPERSACARPINE [Concomitant]
  2. RANIBIZUMAB [Suspect]
     Dates: start: 20110510
  3. RANIBIZUMAB [Suspect]
     Indication: AGE-RELATED MACULAR DEGENERATION
     Route: 050
     Dates: start: 20110412
  4. RANIBIZUMAB [Suspect]
     Dates: start: 20110607

REACTIONS (5)
  - VISUAL ACUITY REDUCED [None]
  - VISUAL IMPAIRMENT [None]
  - CATARACT [None]
  - DRUG INEFFECTIVE [None]
  - ANGLE CLOSURE GLAUCOMA [None]
